FAERS Safety Report 5075678-2 (Version None)
Quarter: 2006Q3

REPORT INFORMATION
  Report Type: 
  Country: None (occurrence: None)
  Receive Date: 20060809
  Receipt Date: 20060125
  Transmission Date: 20061208
  Serious: No
  Sender: FDA-Public Use
  Company Number: US-AMGEN-US166321

PATIENT
  Sex: Male

DRUGS (7)
  1. EPOGEN [Suspect]
     Indication: DIALYSIS
  2. IRON [Concomitant]
     Route: 042
  3. GLYBURIDE [Concomitant]
  4. THERAPEUTIC MULTIVITAMINS [Concomitant]
  5. LYRICA [Concomitant]
  6. UNSPECIFIED BETA BLOCKER [Concomitant]
  7. ROCALTROL [Concomitant]

REACTIONS (1)
  - THERAPEUTIC RESPONSE DECREASED [None]
